FAERS Safety Report 14657050 (Version 1)
Quarter: 2018Q1

REPORT INFORMATION
  Report Type: Spontaneous
  Country: DE (occurrence: US)
  Receive Date: 20180319
  Receipt Date: 20180319
  Transmission Date: 20180509
  Serious: Yes (Other)
  Sender: FDA-Public Use
  Company Number: DE-009507513-1803USA005390

PATIENT
  Sex: Male

DRUGS (2)
  1. PROPECIA [Suspect]
     Active Substance: FINASTERIDE
     Indication: ALOPECIA
     Dosage: UNK, TOOK FOR AN YEAR
     Route: 048
  2. PROPECIA [Suspect]
     Active Substance: FINASTERIDE
     Dosage: UNK
     Route: 048
     Dates: end: 201302

REACTIONS (15)
  - Tinnitus [Not Recovered/Not Resolved]
  - Erectile dysfunction [Not Recovered/Not Resolved]
  - Depression suicidal [Not Recovered/Not Resolved]
  - Fatigue [Not Recovered/Not Resolved]
  - Adverse drug reaction [Not Recovered/Not Resolved]
  - Depression [Not Recovered/Not Resolved]
  - Testicular failure [Not Recovered/Not Resolved]
  - Hormone level abnormal [Unknown]
  - Psychiatric symptom [Not Recovered/Not Resolved]
  - Genital pain [Not Recovered/Not Resolved]
  - Feeling abnormal [Not Recovered/Not Resolved]
  - Loss of libido [Not Recovered/Not Resolved]
  - Disturbance in attention [Unknown]
  - Antisocial behaviour [Not Recovered/Not Resolved]
  - Anti-androgen withdrawal syndrome [Not Recovered/Not Resolved]
